FAERS Safety Report 10197908 (Version 1)
Quarter: 2014Q2

REPORT INFORMATION
  Report Type: Report from Study
  Country: US (occurrence: US)
  Receive Date: 20140527
  Receipt Date: 20140527
  Transmission Date: 20141212
  Serious: Yes (Life-Threatening)
  Sender: FDA-Public Use
  Company Number: US-SA-2014SA064998

PATIENT
  Age: 84 Year
  Sex: Male

DRUGS (7)
  1. LANTUS SOLOSTAR [Suspect]
     Indication: TYPE 2 DIABETES MELLITUS
     Dosage: DOSE:60 UNIT(S)
     Route: 058
  2. LASIX [Concomitant]
     Indication: FLUID RETENTION
  3. LASIX [Concomitant]
     Indication: FLUID RETENTION
  4. METOLAZONE [Concomitant]
  5. GLIMEPIRIDE [Concomitant]
  6. CRESTOR [Concomitant]
  7. SOLOSTAR [Concomitant]
     Indication: TYPE 2 DIABETES MELLITUS

REACTIONS (4)
  - Chronic obstructive pulmonary disease [Recovered/Resolved]
  - Dyspnoea [Recovered/Resolved]
  - Emphysema [Recovered/Resolved]
  - Cardiac failure congestive [Recovered/Resolved]
